FAERS Safety Report 6886856-1 (Version None)
Quarter: 2010Q3

REPORT INFORMATION
  Report Type: 
  Country: None (occurrence: None)
  Receive Date: 20100730
  Receipt Date: 20100723
  Transmission Date: 20110219
  Serious: Yes (Hospitalization, Other)
  Sender: FDA-Public Use
  Company Number: US-PFIZER INC-2010035444

PATIENT
  Sex: Female

DRUGS (3)
  1. CHANTIX [Suspect]
     Indication: SMOKING CESSATION THERAPY
     Dosage: UNK
     Route: 048
     Dates: start: 20080201, end: 20080317
  2. CEPHALEXIN [Concomitant]
     Indication: SINUSITIS
     Dosage: UNK
     Dates: start: 20000101, end: 20090101
  3. AMOXICILLIN [Concomitant]
     Indication: SINUSITIS
     Dosage: UNK
     Dates: start: 20000101, end: 20090101

REACTIONS (7)
  - ABNORMAL BEHAVIOUR [None]
  - ANXIETY [None]
  - DEPRESSION [None]
  - INSOMNIA [None]
  - INTENTIONAL OVERDOSE [None]
  - JUDGEMENT IMPAIRED [None]
  - SUICIDE ATTEMPT [None]
